FAERS Safety Report 6746022-7 (Version None)
Quarter: 2010Q2

REPORT INFORMATION
  Report Type: 
  Country: None (occurrence: None)
  Receive Date: 20100528
  Receipt Date: 20100520
  Transmission Date: 20101027
  Serious: Yes (Other)
  Sender: FDA-Public Use
  Company Number: MT-PFIZER INC-2010063853

PATIENT
  Age: 59 Year
  Sex: Female

DRUGS (5)
  1. CARDURA [Suspect]
     Dosage: 2 MG, EVERY NIGHT
     Route: 048
     Dates: start: 20100427, end: 20100517
  2. BENDROFLUAZIDE [Concomitant]
     Dosage: 2.5 MG, 1X/DAY
  3. DIOVANE [Concomitant]
     Dosage: 160 MG, 2X/DAY
  4. ATENOLOL [Concomitant]
     Dosage: 50 MG, 1X/DAY
  5. PHYSIOTENS [Concomitant]
     Dosage: 0.4 MG, 1X/DAY

REACTIONS (3)
  - FALL [None]
  - LETHARGY [None]
  - SOMNOLENCE [None]
